FAERS Safety Report 6339369-X (Version None)
Quarter: 2009Q3

REPORT INFORMATION
  Report Type: 
  Country: None (occurrence: None)
  Receive Date: 20090903
  Receipt Date: 20090825
  Transmission Date: 20100115
  Serious: Yes (Hospitalization)
  Sender: FDA-Public Use
  Company Number: MX-ELI_LILLY_AND_COMPANY-MX200901000875

PATIENT
  Age: 34 Year
  Sex: Female

DRUGS (5)
  1. HUMALOG MIX 75/25 [Suspect]
     Indication: DIABETES MELLITUS
     Dosage: 30 IU, UNKNOWN
     Route: 058
     Dates: start: 20090112
  2. HUMALOG MIX 75/25 [Suspect]
     Dosage: 6 IU, EACH MORNING
     Route: 065
     Dates: end: 20090701
  3. HUMALOG MIX 75/25 [Suspect]
     Dosage: 12 IU, EACH EVENING
     Route: 065
     Dates: end: 20090701
  4. FOLIC ACID [Concomitant]
     Dosage: 0.4 MG, DAILY (1/D)
     Route: 065
  5. IRON [Concomitant]
     Dosage: UNK, UNKNOWN
     Route: 065

REACTIONS (6)
  - BLOOD GLUCOSE DECREASED [None]
  - DRUG EXPOSURE DURING PREGNANCY [None]
  - HEADACHE [None]
  - HYPERTENSION [None]
  - POLYHYDRAMNIOS [None]
  - POSTPARTUM DEPRESSION [None]
